FAERS Safety Report 7468827-X (Version None)
Quarter: 2011Q2

REPORT INFORMATION
  Report Type: 
  Country: None (occurrence: None)
  Receive Date: 20110510
  Receipt Date: 20110502
  Transmission Date: 20111010
  Serious: No
  Sender: FDA-Public Use
  Company Number: US-BIOGENIDEC-2011BI016567

PATIENT
  Age: 56 Year
  Sex: Male

DRUGS (3)
  1. TYSABRI [Suspect]
     Indication: MULTIPLE SCLEROSIS
     Route: 042
     Dates: start: 20090924
  2. TYSABRI [Suspect]
     Route: 042
     Dates: start: 20070215, end: 20070925
  3. TYSABRI [Suspect]
     Route: 042
     Dates: start: 20050215

REACTIONS (1)
  - POOR VENOUS ACCESS [None]
